FAERS Safety Report 7102526-9 (Version None)
Quarter: 2010Q4

REPORT INFORMATION
  Report Type: 
  Country: None (occurrence: None)
  Receive Date: 20101115
  Receipt Date: 20101105
  Transmission Date: 20110411
  Serious: Yes (Hospitalization)
  Sender: FDA-Public Use
  Company Number: CA-ROCHE-739933

PATIENT
  Sex: Male
  Weight: 102 kg

DRUGS (11)
  1. BEVACIZUMAB [Suspect]
     Indication: GLIOBLASTOMA
     Route: 042
     Dates: start: 20100927
  2. FRISIUM [Concomitant]
  3. ZYPREXA [Concomitant]
  4. EFFEXOR [Concomitant]
  5. LOVENOX [Concomitant]
  6. PANTOLOC [Concomitant]
  7. DECADRON [Concomitant]
  8. KEPPRA [Concomitant]
  9. TYLENOL [Concomitant]
     Indication: PREMEDICATION
     Dosage: FREQ: ONCE
     Route: 048
     Dates: start: 20101025, end: 20101025
  10. BENADRYL [Concomitant]
     Indication: PREMEDICATION
     Dosage: FREQ: ONCE
     Route: 048
     Dates: start: 20101025, end: 20101025
  11. SOLU-MEDROL [Concomitant]
     Indication: PREMEDICATION
     Dosage: FREQ: ONCE
     Route: 042
     Dates: start: 20101025, end: 20101025

REACTIONS (4)
  - EPISTAXIS [None]
  - FALL [None]
  - FATIGUE [None]
  - SKIN DISCOLOURATION [None]
